FAERS Safety Report 5925637-X (Version None)
Quarter: 2008Q4

REPORT INFORMATION
  Report Type: 
  Country: None (occurrence: None)
  Receive Date: 20081021
  Receipt Date: 20081008
  Transmission Date: 20090506
  Serious: Yes (Hospitalization)
  Sender: FDA-Public Use
  Company Number: FR-BAYER-200827831GPV

PATIENT
  Age: 53 Year
  Sex: Male

DRUGS (3)
  1. ASPIRIN [Suspect]
     Indication: PYREXIA
     Route: 048
     Dates: start: 20080715, end: 20080730
  2. ACETAMINOPHEN [Suspect]
     Indication: PYREXIA
     Route: 048
     Dates: start: 20080715, end: 20080730
  3. NEXEN [Suspect]
     Indication: PYREXIA
     Route: 065
     Dates: start: 20080715, end: 20080730

REACTIONS (1)
  - TUBULOINTERSTITIAL NEPHRITIS [None]
